FAERS Safety Report 13772181 (Version 3)
Quarter: 2018Q1

REPORT INFORMATION
  Report Type: Spontaneous
  Country: US (occurrence: US)
  Receive Date: 20170720
  Receipt Date: 20180226
  Transmission Date: 20180508
  Serious: Yes (Death, Hospitalization, Other)
  Sender: FDA-Public Use
  Company Number: US-JNJFOC-20170715107

PATIENT
  Age: 79 Year
  Sex: Female

DRUGS (10)
  1. FUROSEMIDE. [Concomitant]
     Active Substance: FUROSEMIDE
  2. ACETAMINOPHEN. [Concomitant]
     Active Substance: ACETAMINOPHEN
  3. COUMADIN [Suspect]
     Active Substance: WARFARIN SODIUM
     Indication: PRODUCT USED FOR UNKNOWN INDICATION
     Route: 065
  4. DIGOX [Concomitant]
     Active Substance: DIGOXIN
  5. AMLODIPINE [Concomitant]
     Active Substance: AMLODIPINE BESYLATE
  6. IMBRUVICA [Suspect]
     Active Substance: IBRUTINIB
     Indication: DIFFUSE LARGE B-CELL LYMPHOMA
     Route: 048
     Dates: start: 20170509, end: 20170710
  7. CARDURA [Concomitant]
     Active Substance: DOXAZOSIN MESYLATE
  8. METOPROLOL. [Concomitant]
     Active Substance: METOPROLOL
  9. PRAVASTATIN. [Concomitant]
     Active Substance: PRAVASTATIN
  10. DIOVAN [Concomitant]
     Active Substance: VALSARTAN

REACTIONS (7)
  - Medical procedure [Unknown]
  - Product use in unapproved indication [Unknown]
  - Disease progression [Fatal]
  - Gastrointestinal haemorrhage [Not Recovered/Not Resolved]
  - Anaemia [Unknown]
  - Lymphadenopathy [Unknown]
  - Off label use [Unknown]

NARRATIVE: CASE EVENT DATE: 20170509
